FAERS Safety Report 8880147 (Version 3)
Quarter: 2014Q3

REPORT INFORMATION
  Report Type: Report from Study
  Country: US (occurrence: US)
  Receive Date: 20121031
  Receipt Date: 20140819
  Transmission Date: 20150326
  Serious: Yes (Death, Other)
  Sender: FDA-Public Use
  Company Number: US-ALEXION-A201202010

PATIENT
  Age: 52 Year
  Sex: Female

DRUGS (15)
  1. DULCOLAX [Concomitant]
     Active Substance: BISACODYL OR DOCUSATE SODIUM
  2. TYLENOL [Concomitant]
     Active Substance: ACETAMINOPHEN
  3. INSULIN [Concomitant]
     Active Substance: INSULIN NOS
  4. NEXIUM [Concomitant]
     Active Substance: ESOMEPRAZOLE MAGNESIUM
  5. NEURONTIN [Concomitant]
     Active Substance: GABAPENTIN
  6. CELEXA [Concomitant]
     Active Substance: CITALOPRAM HYDROBROMIDE
  7. SYNTHROID [Concomitant]
     Active Substance: LEVOTHYROXINE SODIUM
  8. FENTANYL. [Concomitant]
     Active Substance: FENTANYL
  9. HEPARIN [Concomitant]
     Active Substance: HEPARIN SODIUM
  10. SENOKOT [Concomitant]
     Active Substance: SENNOSIDES
  11. DURAGESIC [Concomitant]
     Active Substance: FENTANYL
  12. SOLIRIS [Suspect]
     Active Substance: ECULIZUMAB
     Indication: HAEMOLYTIC URAEMIC SYNDROME
     Dosage: 1200 MG, SINGLE
     Dates: start: 20120617, end: 201206
  13. COLACE [Concomitant]
     Active Substance: DOCUSATE SODIUM
  14. ROXICODONE [Concomitant]
     Active Substance: OXYCODONE HYDROCHLORIDE
  15. PREDNISONE. [Concomitant]
     Active Substance: PREDNISONE

REACTIONS (7)
  - Blood lactate dehydrogenase increased [Unknown]
  - Anuria [Unknown]
  - Haemoglobin decreased [Unknown]
  - Thrombotic microangiopathy [Unknown]
  - Death [Fatal]
  - Platelet count decreased [Recovered/Resolved]
  - Renal disorder [Unknown]

NARRATIVE: CASE EVENT DATE: 20120618
